FAERS Safety Report 21309183 (Version 2)
Quarter: 2022Q4

REPORT INFORMATION
  Report Type: Report from Study
  Country: DE (occurrence: DE)
  Receive Date: 20220908
  Receipt Date: 20221007
  Transmission Date: 20230113
  Serious: Yes (Hospitalization, Other)
  Sender: FDA-Public Use
  Company Number: DE-EXELIXIS-XL18422054948

PATIENT
  Age: 78 Year
  Sex: Male
  Weight: 86 kg

DRUGS (4)
  1. CABOZANTINIB [Suspect]
     Active Substance: CABOZANTINIB
     Indication: Renal cell carcinoma
     Dosage: ON 12 AUG 2022, THE PATIENT RECEIVED THE MOST RECENT DOSE OF BLINDED STUDY TREATMENT PRIOR TO THE EV
     Route: 048
     Dates: start: 20200727
  2. IPILIMUMAB [Suspect]
     Active Substance: IPILIMUMAB
     Indication: Renal cell carcinoma
     Dosage: ON 28 SEP 2020, THE PATIENT RECEIVED THE MOST RECENT DOSE OF IPILIMUMAB PRIOR TO THE EVENT, AND DOSE
     Route: 042
     Dates: start: 20200727, end: 20200928
  3. MAGNESIUM ASPARTATE HYDROCHLORIDE [Concomitant]
     Active Substance: MAGNESIUM ASPARTATE HYDROCHLORIDE
     Indication: Product used for unknown indication
     Route: 065
  4. LISINOPRIL [Concomitant]
     Active Substance: LISINOPRIL
     Indication: Product used for unknown indication
     Route: 065

REACTIONS (1)
  - Immune-mediated pancreatitis [Recovered/Resolved with Sequelae]

NARRATIVE: CASE EVENT DATE: 20220813
